FAERS Safety Report 6762956-1 (Version None)
Quarter: 2010Q2

REPORT INFORMATION
  Report Type: 
  Country: None (occurrence: None)
  Receive Date: 20100609
  Receipt Date: 20100528
  Transmission Date: 20101027
  Serious: Yes (Other)
  Sender: FDA-Public Use
  Company Number: US-PFIZER INC-2010059783

PATIENT
  Sex: Female

DRUGS (1)
  1. CHANTIX [Suspect]
     Dosage: UNKNOWN DOSE TWICE DAILY

REACTIONS (3)
  - ANXIETY [None]
  - RESPIRATORY ARREST [None]
  - TONIC CLONIC MOVEMENTS [None]
